FAERS Safety Report 4909469-7 (Version None)
Quarter: 2006Q1

REPORT INFORMATION
  Report Type: 
  Country: None (occurrence: None)
  Receive Date: 20060213
  Receipt Date: 20050706
  Transmission Date: 20060701
  Serious: Yes (Death, Other)
  Sender: FDA-Public Use
  Company Number: US-MERCK-0507USA00961

PATIENT
  Sex: Male

DRUGS (6)
  1. VIOXX [Suspect]
     Indication: ARTHRITIS
     Route: 048
     Dates: start: 20021201, end: 20021201
  2. VIOXX [Suspect]
     Indication: GOUT
     Route: 048
     Dates: start: 20021201, end: 20021201
  3. BEXTRA [Suspect]
     Route: 065
  4. CELEBREX [Suspect]
     Route: 065
  5. COUMADIN [Concomitant]
     Route: 065
  6. ALLOPURINOL MSD [Concomitant]
     Route: 065

REACTIONS (4)
  - CARDIAC ARREST [None]
  - CARDIAC VALVE DISEASE [None]
  - DEATH [None]
  - RENAL FAILURE [None]
